FAERS Safety Report 23632570 (Version 1)
Quarter: 2024Q1

REPORT INFORMATION
  Report Type: Report from Study
  Country: CO (occurrence: CO)
  Receive Date: 20240314
  Receipt Date: 20240314
  Transmission Date: 20240410
  Serious: Yes (Hospitalization, Other)
  Sender: FDA-Public Use
  Company Number: CO-IPSEN Group, Research and Development-2023-24838

PATIENT
  Age: 36 Year
  Sex: Female
  Weight: 59 kg

DRUGS (2)
  1. LANREOTIDE ACETATE [Suspect]
     Active Substance: LANREOTIDE ACETATE
     Indication: Neuroendocrine tumour
     Route: 058
     Dates: start: 20231003
  2. NAPROXEN [Concomitant]
     Active Substance: NAPROXEN
     Indication: Pain management
     Route: 048

REACTIONS (20)
  - Benign neoplasm of spinal cord [Recovered/Resolved]
  - Hepatic neoplasm [Not Recovered/Not Resolved]
  - Cholecystitis infective [Unknown]
  - Cholecystitis [Unknown]
  - Cholelithiasis [Unknown]
  - Throat cancer [Unknown]
  - Chest pain [Not Recovered/Not Resolved]
  - Dizziness [Not Recovered/Not Resolved]
  - Feeling abnormal [Not Recovered/Not Resolved]
  - Asthenia [Unknown]
  - Depression [Unknown]
  - Breast pain [Unknown]
  - Arthralgia [Unknown]
  - Hypokinesia [Unknown]
  - Cancer pain [Unknown]
  - Nausea [Unknown]
  - Headache [Unknown]
  - Decreased appetite [Unknown]
  - Product dose omission issue [Unknown]
  - Product supply issue [Unknown]

NARRATIVE: CASE EVENT DATE: 20231018
